FAERS Safety Report 7731499-0 (Version None)
Quarter: 2011Q3

REPORT INFORMATION
  Report Type: 
  Country: None (occurrence: None)
  Receive Date: 20110906
  Receipt Date: 20110606
  Transmission Date: 20111222
  Serious: No
  Sender: FDA-Public Use
  Company Number: US-AMGEN-USASP2011029088

PATIENT
  Sex: Female

DRUGS (4)
  1. PROLIA [Suspect]
     Indication: OSTEOPOROSIS POSTMENOPAUSAL
     Dosage: UNK
     Dates: start: 20110331
  2. VITAMINS                           /00067501/ [Concomitant]
  3. SYNTHROID [Concomitant]
  4. EYE DROPS [Concomitant]

REACTIONS (2)
  - MYALGIA [None]
  - MOBILITY DECREASED [None]
